FAERS Safety Report 4605823-1 (Version None)
Quarter: 2005Q1

REPORT INFORMATION
  Report Type: 
  Country: None (occurrence: None)
  Receive Date: 20050115
  Receipt Date: 20041122
  Transmission Date: 20050727
  Serious: Yes (Hospitalization)
  Sender: FDA-Public Use
  Company Number: A03200403940

PATIENT
  Age: 30 Year
  Sex: Male
  Weight: 117.9352 kg

DRUGS (7)
  1. AMBIEN [Suspect]
     Indication: INSOMNIA
     Dosage: 10MG H S; ORAL
     Route: 048
     Dates: start: 20041010, end: 20041119
  2. AMBIEN [Suspect]
     Indication: INSOMNIA
     Dosage: 20 MG ONCE; ORAL
     Route: 048
     Dates: start: 20041119, end: 20041119
  3. METOPROLOL TARTRATE [Concomitant]
  4. CITALOPRAM HYDROBROMIDE [Concomitant]
  5. ATORVASTATIN CALCIUM [Concomitant]
  6. LEVOTHYROXINE SODIUM [Concomitant]
  7. HYDROCODONE BITARTRATE [Concomitant]

REACTIONS (2)
  - AMNESIA [None]
  - INTENTIONAL MISUSE [None]
